FAERS Safety Report 8490044-5 (Version None)
Quarter: 2012Q3

REPORT INFORMATION
  Report Type: 
  Country: None (occurrence: None)
  Receive Date: 20120705
  Receipt Date: 20120625
  Transmission Date: 20120928
  Serious: Yes (Hospitalization, Other)
  Sender: FDA-Public Use
  Company Number: US-SANOFI-AVENTIS-2012SA041415

PATIENT
  Age: 61 Year
  Sex: Female
  Weight: 145.5 kg

DRUGS (16)
  1. INSULIN [Concomitant]
  2. GLUCOPHAGE [Suspect]
  3. LANOXIN [Concomitant]
  4. HYDROCHLOROTHIAZIDE [Concomitant]
  5. ALLOPURINOL [Concomitant]
  6. VICODIN [Concomitant]
  7. LOPRESSOR [Concomitant]
  8. FLEXERIL [Concomitant]
  9. DICLOFENAC SODIUM [Concomitant]
  10. PRAVASTATIN [Concomitant]
  11. VITAMIN D [Concomitant]
     Dosage: DOSE:50000 UNIT(S)
  12. DIABETA [Suspect]
  13. ELAVIL [Concomitant]
  14. BUMEX [Concomitant]
  15. COUMADIN [Concomitant]
  16. LANTUS [Concomitant]

REACTIONS (6)
  - LARYNGEAL POLYP [None]
  - RESPIRATORY DISTRESS [None]
  - ASTHMA [None]
  - VOLVULUS [None]
  - CHRONIC OBSTRUCTIVE PULMONARY DISEASE [None]
  - CONDITION AGGRAVATED [None]
